FAERS Safety Report 6382138-5 (Version None)
Quarter: 2009Q3

REPORT INFORMATION
  Report Type: 
  Country: None (occurrence: None)
  Receive Date: 20090925
  Receipt Date: 20090914
  Transmission Date: 20100115
  Serious: Yes (Hospitalization)
  Sender: FDA-Public Use
  Company Number: 230274J09USA

PATIENT
  Age: 45 Year
  Sex: Female

DRUGS (3)
  1. REBIF [Suspect]
     Indication: MULTIPLE SCLEROSIS
     Dosage: 44 MCG, 3 IN 1 WEEKS, SUBCUTANEOUS
     Route: 058
     Dates: start: 20090416, end: 20090816
  2. ANTIHYPERTENSIVE (ANTIHYPERTENSIVES) [Concomitant]
  3. CHOLESTEROL LOWERING DRUGS(CHOLESTEROL- AND TRIGLYCERIDE REDUCERS) [Concomitant]

REACTIONS (2)
  - CEREBROVASCULAR ACCIDENT [None]
  - HAEMATEMESIS [None]
